FAERS Safety Report 24791711 (Version 1)
Quarter: 2024Q4

REPORT INFORMATION
  Report Type: Spontaneous
  Country: US (occurrence: US)
  Receive Date: 20241231
  Receipt Date: 20241231
  Transmission Date: 20250115
  Serious: No
  Sender: ENDO
  Company Number: US-ENDO USA, INC.-2024-003558

PATIENT
  Sex: Male

DRUGS (4)
  1. COLCHICINE [Suspect]
     Active Substance: COLCHICINE
     Indication: Pericarditis
     Dosage: UNK UNKNOWN, UNKNOWN
     Route: 065
     Dates: start: 2024
  2. NITROSTAT [Concomitant]
     Active Substance: NITROGLYCERIN
     Indication: Chest pain
     Dosage: 0.4 MILLIGRAM, PRN (EVERY 5 MINUTES,MAY REPEAT DOSE EVERY 5 MINUTES FOR UP TO 3 DOSES TOTAL)
     Route: 060
     Dates: start: 20240708
  3. CRESTOR [Concomitant]
     Active Substance: ROSUVASTATIN CALCIUM
     Indication: Hyperlipidaemia
     Dosage: 20 MILLIGRAM, OD (NIGHTLY)
     Route: 048
     Dates: start: 20240623, end: 20240821
  4. CRESTOR [Concomitant]
     Active Substance: ROSUVASTATIN CALCIUM
     Dosage: 20 MILLIGRAM, OD (NIGHTLY)
     Route: 048
     Dates: start: 20240822

REACTIONS (5)
  - Abdominal discomfort [Unknown]
  - Nausea [Unknown]
  - Diarrhoea [Unknown]
  - Off label use [Unknown]
  - Drug effective for unapproved indication [Unknown]

NARRATIVE: CASE EVENT DATE: 20240101
